FAERS Safety Report 21908615 (Version 1)
Quarter: 2023Q1

REPORT INFORMATION
  Report Type: Spontaneous
  Country: US (occurrence: None)
  Receive Date: 20230124
  Receipt Date: 20230124
  Transmission Date: 20230418
  Serious: Yes (Other)
  Sender: FDA-Public Use
  Company Number: None

PATIENT
  Age: 75 Year
  Sex: Female

DRUGS (6)
  1. ATORVASTATIN [Suspect]
     Active Substance: ATORVASTATIN
     Indication: Blood cholesterol increased
  2. Generic Norvasc 5 MG [Concomitant]
  3. MINERALS\VITAMINS [Concomitant]
     Active Substance: MINERALS\VITAMINS
  4. VITAMIN D3 [Concomitant]
     Active Substance: CHOLECALCIFEROL
  5. Refresh Optive Advanced Eye Drop for dry eye [Concomitant]
  6. TYLENOL [Concomitant]
     Active Substance: ACETAMINOPHEN

REACTIONS (9)
  - Pain in extremity [None]
  - Muscular weakness [None]
  - Insomnia [None]
  - Tenderness [None]
  - Facial pain [None]
  - Swelling face [None]
  - Dysuria [None]
  - Constipation [None]
  - Quality of life decreased [None]
